FAERS Safety Report 14860395 (Version 1)
Quarter: 2018Q2

REPORT INFORMATION
  Report Type: Spontaneous
  Country: US (occurrence: US)
  Receive Date: 20180508
  Receipt Date: 20180508
  Transmission Date: 20180711
  Serious: No
  Sender: FDA-Public Use
  Company Number: US-BAYER-2018-084428

PATIENT
  Sex: Female

DRUGS (2)
  1. MIRENA [Suspect]
     Active Substance: LEVONORGESTREL
     Dosage: 20 MCG/24HR, CONT
     Route: 015
  2. MIRENA [Suspect]
     Active Substance: LEVONORGESTREL

REACTIONS (18)
  - Proctalgia [Not Recovered/Not Resolved]
  - Dyschezia [Not Recovered/Not Resolved]
  - Dyspareunia [Not Recovered/Not Resolved]
  - Adverse drug reaction [None]
  - Proctalgia [None]
  - Swelling [Not Recovered/Not Resolved]
  - Pain [None]
  - Dyschezia [None]
  - Pain [Not Recovered/Not Resolved]
  - Abdominal pain upper [Not Recovered/Not Resolved]
  - Breast swelling [Not Recovered/Not Resolved]
  - Adverse drug reaction [Not Recovered/Not Resolved]
  - Abdominal pain upper [None]
  - Breast swelling [None]
  - Musculoskeletal pain [Not Recovered/Not Resolved]
  - Abdominal distension [None]
  - Dyspareunia [None]
  - Musculoskeletal pain [None]

NARRATIVE: CASE EVENT DATE: 20180428
